FAERS Safety Report 9865744 (Version 2)
Quarter: 2014Q1

REPORT INFORMATION
  Report Type: Spontaneous
  Country: US (occurrence: US)
  Receive Date: 20140203
  Receipt Date: 20140203
  Transmission Date: 20141002
  Serious: No
  Sender: FDA-Public Use
  Company Number: US-ALLERGAN-1310045US

PATIENT
  Age: 74 Year
  Sex: Male

DRUGS (5)
  1. RESTASIS [Suspect]
     Indication: DRY EYE
     Dosage: 2 GTT, BID
     Route: 047
  2. AZOPT [Concomitant]
     Indication: GLAUCOMA
     Dosage: 2 GTT, BID
     Route: 047
  3. TRAVATAN Z [Concomitant]
     Indication: GLAUCOMA
     Dosage: 2 GTT, BID
     Route: 047
  4. COMBIGAN[R] [Concomitant]
     Indication: GLAUCOMA
     Dosage: 2 GTT, BID
     Route: 047
  5. ALLEGRA ALLERGY [Concomitant]
     Indication: HYPERSENSITIVITY
     Dosage: UNK UNK, QD
     Route: 048
     Dates: start: 201306

REACTIONS (7)
  - Abnormal sensation in eye [Not Recovered/Not Resolved]
  - Expired drug administered [Unknown]
  - Drug ineffective [Unknown]
  - Eye discharge [Not Recovered/Not Resolved]
  - Eyelid margin crusting [Not Recovered/Not Resolved]
  - Eyelid margin crusting [Not Recovered/Not Resolved]
  - Eye discharge [Not Recovered/Not Resolved]
